FAERS Safety Report 15844777 (Version 2)
Quarter: 2019Q1

REPORT INFORMATION
  Report Type: Report from Study
  Country: US (occurrence: US)
  Receive Date: 20190118
  Receipt Date: 20190319
  Transmission Date: 20190417
  Serious: Yes (Other)
  Sender: FDA-Public Use
  Company Number: PHEH2019US001894

PATIENT
  Age: 7 Year
  Sex: Male
  Weight: 32.11 kg

DRUGS (1)
  1. ILARIS [Suspect]
     Active Substance: CANAKINUMAB
     Indication: AUTOINFLAMMATORY DISEASE
     Dosage: 150 MG, Q3WWEEKS
     Route: 058

REACTIONS (5)
  - Injection site bruising [Unknown]
  - Pyrexia [Recovered/Resolved]
  - Swelling face [Unknown]
  - Oedema [Unknown]
  - Lip swelling [Recovered/Resolved]

NARRATIVE: CASE EVENT DATE: 20190103
